FAERS Safety Report 13662216 (Version 1)
Quarter: 2017Q2

REPORT INFORMATION
  Report Type: Spontaneous
  Country: GB (occurrence: GB)
  Receive Date: 20170616
  Receipt Date: 20170616
  Transmission Date: 20170830
  Serious: Yes (Hospitalization)
  Sender: FDA-Public Use
  Company Number: GB-INTERNATIONAL MEDICATION SYSTEMS, LIMITED-2022151

PATIENT
  Age: 55 Year
  Sex: Male
  Weight: 45 kg

DRUGS (17)
  1. FUROSEMIDE. [Suspect]
     Active Substance: FUROSEMIDE
     Indication: PULMONARY OEDEMA
     Route: 065
     Dates: start: 20160402
  2. ATORVASTATIN [Concomitant]
     Active Substance: ATORVASTATIN
     Route: 065
     Dates: start: 20130708
  3. FUROSEMIDE. [Suspect]
     Active Substance: FUROSEMIDE
     Indication: LUNG DISORDER
     Route: 065
     Dates: start: 20160402
  4. OMEPRAZOLE. [Suspect]
     Active Substance: OMEPRAZOLE
     Route: 048
     Dates: start: 20140116
  5. ISOSORBIDE MONONITRATE. [Suspect]
     Active Substance: ISOSORBIDE MONONITRATE
     Route: 048
     Dates: start: 20160205
  6. IVABRADINE [Suspect]
     Active Substance: IVABRADINE
     Route: 065
     Dates: start: 20150211
  7. LOTRIDERM [Concomitant]
     Active Substance: BETAMETHASONE DIPROPIONATE\CLOTRIMAZOLE
     Route: 065
     Dates: start: 20150626
  8. KAPAKE [Concomitant]
     Active Substance: ACETAMINOPHEN\CODEINE PHOSPHATE
     Route: 065
     Dates: start: 20110616
  9. BOCOCIZUMAB [Suspect]
     Active Substance: BOCOCIZUMAB
     Route: 058
     Dates: start: 20150908, end: 20161101
  10. CARVEDILOL. [Suspect]
     Active Substance: CARVEDILOL
     Route: 065
     Dates: start: 20110616
  11. RAMIPRIL. [Suspect]
     Active Substance: RAMIPRIL
     Route: 048
     Dates: start: 20130813, end: 20160926
  12. FUROSEMIDE. [Suspect]
     Active Substance: FUROSEMIDE
     Indication: LEFT VENTRICULAR DYSFUNCTION
     Route: 065
     Dates: start: 20160402
  13. QUETIAPINE FUMARATE. [Suspect]
     Active Substance: QUETIAPINE FUMARATE
     Route: 048
     Dates: start: 20150826
  14. ASPIRIN. [Concomitant]
     Active Substance: ASPIRIN
     Route: 065
     Dates: start: 20130708
  15. GLYCERYL TRINITRATE [Concomitant]
     Active Substance: NITROGLYCERIN
     Route: 065
     Dates: start: 20130902
  16. METHOTREXATE. [Concomitant]
     Active Substance: METHOTREXATE
     Route: 065
     Dates: start: 20150727
  17. SERTRALINE HYDROCHLORIDE. [Concomitant]
     Active Substance: SERTRALINE HYDROCHLORIDE
     Route: 065
     Dates: start: 20110816

REACTIONS (11)
  - Presyncope [None]
  - Contusion [None]
  - Psoriasis [None]
  - Condition aggravated [None]
  - Pulmonary oedema [None]
  - Oedema peripheral [None]
  - Anaemia [None]
  - Hypotension [Recovered/Resolved]
  - Cardiac failure [None]
  - Myocardial infarction [None]
  - Angina pectoris [None]

NARRATIVE: CASE EVENT DATE: 20161025
